FAERS Safety Report 7569893-3 (Version None)
Quarter: 2011Q2

REPORT INFORMATION
  Report Type: 
  Country: None (occurrence: None)
  Receive Date: 20110622
  Receipt Date: 20110622
  Transmission Date: 20111010
  Serious: Yes (Life-Threatening)
  Sender: FDA-Public Use
  Company Number: None

PATIENT
  Age: 57 Year
  Sex: Male
  Weight: 81.6475 kg

DRUGS (1)
  1. LIPITOR [Suspect]
     Dosage: 40MG DAILY PO
     Route: 048
     Dates: start: 20110406, end: 20110410

REACTIONS (3)
  - MOOD SWINGS [None]
  - UNEVALUABLE EVENT [None]
  - DEPRESSION [None]
